FAERS Safety Report 4410568-7 (Version None)
Quarter: 2004Q3

REPORT INFORMATION
  Report Type: 
  Country: None (occurrence: None)
  Receive Date: 20040726
  Receipt Date: 20040715
  Transmission Date: 20050211
  Serious: Yes (Death)
  Sender: FDA-Public Use
  Company Number: US-JNJFOC-20040704572

PATIENT
  Age: 49 Year
  Sex: Male

DRUGS (1)
  1. DURAGESIC [Suspect]
     Indication: PAIN
     Dosage: 100 UG/HR, TRANSDERMAL
     Route: 062

REACTIONS (2)
  - HEART VALVE REPLACEMENT [None]
  - PROCEDURAL COMPLICATION [None]
